FAERS Safety Report 4280084-4 (Version None)
Quarter: 2004Q1

REPORT INFORMATION
  Report Type: 
  Country: None (occurrence: None)
  Receive Date: 20040126
  Receipt Date: 20040112
  Transmission Date: 20041129
  Serious: Yes (Hospitalization, Other)
  Sender: FDA-Public Use
  Company Number: 2004001629

PATIENT
  Age: 82 Year
  Sex: Female

DRUGS (10)
  1. ZOLOFT [Suspect]
     Indication: ILL-DEFINED DISORDER
     Dosage: DAILY, ORAL
     Route: 048
     Dates: start: 20021215, end: 20031218
  2. CELECOXIB (CELECOXIB) [Suspect]
     Indication: ILL-DEFINED DISORDER
     Dosage: DAILY, ORAL
     Route: 048
     Dates: start: 20031201, end: 20031218
  3. MOLSIDOME (MOLSIDOME) [Concomitant]
  4. ALPRAZOLAM [Concomitant]
  5. BISOPROLOL FUMARATE [Concomitant]
  6. LACIDIPINE (LACIDIPINE) [Concomitant]
  7. CLOPIDOGREL BISULFATE [Concomitant]
  8. DIOSMINE (DIOSMIN) [Concomitant]
  9. ZOPICLONE (ZOPICLONE) [Concomitant]
  10. PRAVASTATINE (PRAVASTATIN) [Concomitant]

REACTIONS (4)
  - DRUG INTERACTION [None]
  - FALL [None]
  - HALLUCINATION, AUDITORY [None]
  - VERTIGO [None]
